FAERS Safety Report 18860024 (Version 2)
Quarter: 2021Q1

REPORT INFORMATION
  Report Type: Spontaneous
  Country: US (occurrence: US)
  Receive Date: 20210208
  Receipt Date: 20210213
  Transmission Date: 20210420
  Serious: No
  Sender: FDA-Public Use
  Company Number: US-SA-2021SA038203

PATIENT
  Age: 39 Year
  Sex: Female

DRUGS (1)
  1. DUPIXENT [Suspect]
     Active Substance: DUPILUMAB
     Dosage: 300 MG, OTHER
     Route: 058
     Dates: start: 202007

REACTIONS (6)
  - Eye pain [Unknown]
  - Visual impairment [Unknown]
  - Eye irritation [Unknown]
  - Eye disorder [Unknown]
  - Condition aggravated [Unknown]
  - Asthenopia [Unknown]

NARRATIVE: CASE EVENT DATE: 20201008
